FAERS Safety Report 9827880 (Version 1)
Quarter: 2013Q4

REPORT INFORMATION
  Report Type: Spontaneous
  Country: US (occurrence: None)
  Receive Date: 20131120
  Receipt Date: 20131120
  Transmission Date: 20140711
  Serious: Yes (Other)
  Sender: FDA-Public Use
  Company Number: 2013036397

PATIENT
  Age: 36 Year
  Sex: Male

DRUGS (1)
  1. BERINERT [Suspect]
     Indication: HEREDITARY ANGIOEDEMA

REACTIONS (4)
  - Hereditary angioedema [None]
  - Abdominal pain upper [None]
  - Pain [None]
  - Nausea [None]
